FAERS Safety Report 9782074 (Version 1)
Quarter: 2013Q4

REPORT INFORMATION
  Report Type: Spontaneous
  Country: FR (occurrence: FR)
  Receive Date: 20131226
  Receipt Date: 20131226
  Transmission Date: 20140711
  Serious: Yes (Other)
  Sender: FDA-Public Use
  Company Number: FR-AMGEN-FRASP2013090448

PATIENT
  Age: 47 Year
  Sex: Female

DRUGS (1)
  1. ENBREL [Suspect]
     Indication: PRODUCT USED FOR UNKNOWN INDICATION
     Dosage: 50 MG, WEEKLY
     Route: 065

REACTIONS (12)
  - Hyperthyroidism [Unknown]
  - Tension headache [Unknown]
  - Chest discomfort [Unknown]
  - Anxiety [Unknown]
  - Dry mouth [Unknown]
  - Nasal dryness [Unknown]
  - Colitis [Unknown]
  - Palpitations [Unknown]
  - Muscular weakness [Unknown]
  - Sleep disorder [Unknown]
  - Burning sensation [Unknown]
  - Oral candidiasis [Unknown]
